FAERS Safety Report 4885664-0 (Version None)
Quarter: 2006Q1

REPORT INFORMATION
  Report Type: 
  Country: None (occurrence: None)
  Receive Date: 20060119
  Receipt Date: 20031225
  Transmission Date: 20060701
  Serious: Yes (Death, Life-Threatening)
  Sender: FDA-Public Use
  Company Number: JP-ABBOTT-03P-087-0245828-00

PATIENT
  Sex: Male

DRUGS (9)
  1. KALETRA [Suspect]
     Indication: HIV INFECTION
     Route: 048
     Dates: end: 20040122
  2. KALETRA [Suspect]
     Route: 048
     Dates: start: 20040127, end: 20040811
  3. EFAVIRENZ [Suspect]
     Indication: HIV INFECTION
     Route: 048
     Dates: end: 20040122
  4. EFAVIRENZ [Suspect]
     Route: 048
     Dates: start: 20040127, end: 20040811
  5. ABACAVIR SULFATE [Concomitant]
     Indication: HIV INFECTION
     Route: 048
     Dates: end: 20040122
  6. ABACAVIR SULFATE [Concomitant]
     Route: 048
     Dates: start: 20040127, end: 20040811
  7. DIDANOSINE [Concomitant]
     Indication: HIV INFECTION
     Route: 048
     Dates: end: 20040122
  8. DIDANOSINE [Concomitant]
     Route: 048
     Dates: start: 20040127, end: 20040811
  9. PENTAMIDINE ISETHIONATE [Concomitant]
     Indication: ANTIBIOTIC PROPHYLAXIS
     Route: 048
     Dates: start: 20040130

REACTIONS (10)
  - CEREBRAL INFARCTION [None]
  - CONVULSION [None]
  - GLIOMA [None]
  - HYPERLIPIDAEMIA [None]
  - HYPOAESTHESIA [None]
  - MALAISE [None]
  - MEMORY IMPAIRMENT [None]
  - PAIN [None]
  - PSYCHIATRIC SYMPTOM [None]
  - PULMONARY EMBOLISM [None]
